FAERS Safety Report 11260879 (Version 17)
Quarter: 2021Q3

REPORT INFORMATION
  Report Type: Spontaneous
  Country: BR (occurrence: BR)
  Receive Date: 20150710
  Receipt Date: 20210706
  Transmission Date: 20211014
  Serious: Yes (Hospitalization, Other)
  Sender: FDA-Public Use
  Company Number: BR-GLAXOSMITHKLINE-BR2015GSK098504

PATIENT
  Age: 41 Year
  Sex: Female
  Weight: 74 kg

DRUGS (7)
  1. VITAMIN C [Suspect]
     Active Substance: ASCORBIC ACID
     Indication: RESPIRATORY DISORDER
     Dosage: UNK
  2. AZITHROMYCIN ANHYDROUS. [Suspect]
     Active Substance: AZITHROMYCIN ANHYDROUS
     Indication: RESPIRATORY DISORDER
     Dosage: UNK
  3. ANNITA [Suspect]
     Active Substance: NITAZOXANIDE
     Indication: RESPIRATORY DISORDER
     Dosage: UNK
  4. ASTRAZENECA COVID?19 VACCINE [Suspect]
     Active Substance: AZD-1222
     Indication: COVID-19
     Dosage: UNK
     Dates: start: 202105
  5. VITAMIN D [Suspect]
     Active Substance: VITAMIN D NOS
     Indication: RESPIRATORY DISORDER
     Dosage: UNK
  6. BENLYSTA [Suspect]
     Active Substance: BELIMUMAB
     Indication: SYSTEMIC LUPUS ERYTHEMATOSUS
     Dosage: UNK UNK, CYC
     Route: 042
     Dates: start: 20150622
  7. FLUIR [Suspect]
     Active Substance: FORMOTEROL FUMARATE
     Indication: RESPIRATORY DISORDER
     Dosage: UNK

REACTIONS (26)
  - Hypersensitivity [Unknown]
  - Protein urine present [Unknown]
  - Fibrin D dimer increased [Unknown]
  - Productive cough [Unknown]
  - Skin mass [Not Recovered/Not Resolved]
  - COVID-19 [Recovered/Resolved]
  - Vocal cord thickening [Unknown]
  - Dyspnoea [Unknown]
  - Therapeutic response unexpected [Unknown]
  - Systemic lupus erythematosus [Unknown]
  - Surgery [Unknown]
  - Blister [Unknown]
  - Inflammation [Unknown]
  - Back pain [Not Recovered/Not Resolved]
  - Pyrexia [Unknown]
  - Circumstance or information capable of leading to medication error [Unknown]
  - Product dose omission issue [Not Recovered/Not Resolved]
  - Urinary tract infection [Unknown]
  - Swelling face [Unknown]
  - Hypertension [Unknown]
  - Hypoaesthesia [Unknown]
  - Therapy interrupted [Unknown]
  - Inappropriate schedule of product administration [Unknown]
  - Pain [Not Recovered/Not Resolved]
  - Headache [Unknown]
  - Off label use [Unknown]

NARRATIVE: CASE EVENT DATE: 20201222
